FAERS Safety Report 12092483 (Version 5)
Quarter: 2016Q2

REPORT INFORMATION
  Report Type: Report from Study
  Country: US (occurrence: US)
  Receive Date: 20160219
  Receipt Date: 20160620
  Transmission Date: 20160815
  Serious: Yes (Hospitalization, Other)
  Sender: FDA-Public Use
  Company Number: PHHY2014US129958

PATIENT
  Age: 61 Year
  Sex: Female
  Weight: 64.4 kg

DRUGS (20)
  1. TRICOR [Concomitant]
     Active Substance: FENOFIBRATE
     Indication: PRODUCT USED FOR UNKNOWN INDICATION
     Dosage: 145 MG, QHS
     Route: 048
  2. ROBAXIN [Concomitant]
     Active Substance: METHOCARBAMOL
     Indication: PRODUCT USED FOR UNKNOWN INDICATION
     Dosage: 1000 MG, PRN
     Route: 048
  3. REGADENOSON [Concomitant]
     Active Substance: REGADENOSON
     Indication: MUSCULOSKELETAL CHEST PAIN
     Dosage: UNK
     Route: 065
     Dates: start: 20140626, end: 20140626
  4. AMPYRA [Concomitant]
     Active Substance: DALFAMPRIDINE
     Indication: PRODUCT USED FOR UNKNOWN INDICATION
     Route: 065
  5. BENAZEPRIL [Concomitant]
     Active Substance: BENAZEPRIL HYDROCHLORIDE
     Indication: PRODUCT USED FOR UNKNOWN INDICATION
     Route: 065
  6. PREMARIN [Concomitant]
     Active Substance: ESTROGENS, CONJUGATED
     Indication: PRODUCT USED FOR UNKNOWN INDICATION
     Dosage: 0.625 MG, QD
     Route: 048
  7. LOTREL [Concomitant]
     Active Substance: AMLODIPINE BESYLATE\BENAZEPRIL HYDROCHLORIDE
     Indication: PRODUCT USED FOR UNKNOWN INDICATION
     Dosage: 1 DF, QHS
     Route: 048
  8. DESYREL [Concomitant]
     Active Substance: TRAZODONE HYDROCHLORIDE
     Indication: PRODUCT USED FOR UNKNOWN INDICATION
     Dosage: 50 MG, QHS
     Route: 048
  9. TECFIDERA [Suspect]
     Active Substance: DIMETHYL FUMARATE
     Indication: PRODUCT USED FOR UNKNOWN INDICATION
     Dosage: 240 MG, BID
     Route: 048
  10. METHOCARBAMOL. [Concomitant]
     Active Substance: METHOCARBAMOL
     Indication: PRODUCT USED FOR UNKNOWN INDICATION
     Route: 065
  11. SYNTHROID [Concomitant]
     Active Substance: LEVOTHYROXINE SODIUM
     Indication: PRODUCT USED FOR UNKNOWN INDICATION
     Dosage: 137 UG, QD
     Route: 048
  12. AMINOPHYLLINE. [Concomitant]
     Active Substance: AMINOPHYLLINE
     Indication: CHEST PAIN
     Route: 065
     Dates: start: 20140626, end: 20140626
  13. REGADENOSON [Concomitant]
     Active Substance: REGADENOSON
     Indication: CARDIAC STRESS TEST
  14. SALINE [Concomitant]
     Active Substance: SODIUM CHLORIDE
     Indication: MUSCULOSKELETAL CHEST PAIN
     Route: 065
     Dates: start: 20140626, end: 20140626
  15. SALINE [Concomitant]
     Active Substance: SODIUM CHLORIDE
     Indication: CARDIAC STRESS TEST
  16. TRAZODON [Concomitant]
     Active Substance: TRAZODONE HYDROCHLORIDE
     Indication: PRODUCT USED FOR UNKNOWN INDICATION
     Route: 065
  17. AMLODIPINE [Concomitant]
     Active Substance: AMLODIPINE BESYLATE
     Indication: PRODUCT USED FOR UNKNOWN INDICATION
     Route: 048
  18. AMINOPHYLLINE. [Concomitant]
     Active Substance: AMINOPHYLLINE
     Indication: STRESS
  19. GILENYA [Suspect]
     Active Substance: FINGOLIMOD HYDROCHLORIDE
     Indication: MULTIPLE SCLEROSIS
     Dosage: UNK UNK, QD
     Route: 048
  20. ZOLOFT [Concomitant]
     Active Substance: SERTRALINE HYDROCHLORIDE
     Indication: PRODUCT USED FOR UNKNOWN INDICATION
     Dosage: 100 MG, QD
     Route: 048

REACTIONS (36)
  - Hyperhidrosis [Recovered/Resolved]
  - Sensation of foreign body [Recovered/Resolved]
  - Alanine aminotransferase decreased [Unknown]
  - Dizziness [Recovered/Resolved]
  - Headache [Recovered/Resolved]
  - Fatigue [Unknown]
  - Micturition urgency [Unknown]
  - Diplopia [Unknown]
  - Ataxia [Unknown]
  - Syncope [Recovered/Resolved]
  - Blood urea nitrogen/creatinine ratio increased [Unknown]
  - Blood potassium decreased [Unknown]
  - Rash [Unknown]
  - Pulmonary mass [Recovered/Resolved]
  - Tremor [Unknown]
  - Granuloma [Unknown]
  - Insomnia [Unknown]
  - Hypoaesthesia [Recovered/Resolved]
  - Blood pressure increased [Recovered/Resolved]
  - Nausea [Recovered/Resolved]
  - Anxiety [Unknown]
  - Diplopia [Recovered/Resolved]
  - Dizziness [Unknown]
  - Chest discomfort [Recovered/Resolved]
  - White blood cell count decreased [Unknown]
  - Incontinence [Unknown]
  - Muscle tightness [Recovered/Resolved]
  - Mobility decreased [Unknown]
  - Chest pain [Recovered/Resolved]
  - Blood pressure increased [Recovered/Resolved]
  - Loss of consciousness [Unknown]
  - Hypokalaemia [Recovered/Resolved]
  - Essential hypertension [Recovered/Resolved]
  - Angina pectoris [Recovered/Resolved]
  - Supraventricular extrasystoles [Unknown]
  - Syncope [Unknown]

NARRATIVE: CASE EVENT DATE: 20140615
